FAERS Safety Report 24177663 (Version 1)
Quarter: 2024Q3

REPORT INFORMATION
  Report Type: Report from Study
  Country: US (occurrence: None)
  Receive Date: 20240806
  Receipt Date: 20240806
  Transmission Date: 20241017
  Serious: Yes (Hospitalization)
  Sender: ASTRAZENECA
  Company Number: 2023A079648

PATIENT
  Sex: Male

DRUGS (1)
  1. CALQUENCE [Suspect]
     Active Substance: ACALABRUTINIB
     Route: 048

REACTIONS (7)
  - Urosepsis [Recovering/Resolving]
  - Nephrolithiasis [Recovering/Resolving]
  - Blood glucose increased [Recovering/Resolving]
  - Dyspnoea exertional [Recovering/Resolving]
  - Dysphagia [Recovering/Resolving]
  - Abdominal pain upper [Recovering/Resolving]
  - Product dose omission issue [Unknown]
